FAERS Safety Report 19731660 (Version 1)
Quarter: 2021Q3

REPORT INFORMATION
  Report Type: Spontaneous
  Country: US (occurrence: US)
  Receive Date: 20210820
  Receipt Date: 20210820
  Transmission Date: 20211014
  Serious: No
  Sender: FDA-Public Use
  Company Number: None

PATIENT
  Age: 69 Year
  Sex: Male
  Weight: 110.27 kg

DRUGS (2)
  1. DEXAMETHASONE 40MG [Suspect]
     Active Substance: DEXAMETHASONE
     Dates: end: 20210818
  2. DARATUMUMAB /RHUPH20 1800 MG [Suspect]
     Active Substance: DARATUMUMAB\HYALURONIDASE-FIHJ
     Dates: end: 20210818

REACTIONS (3)
  - Pruritus [None]
  - Infusion related reaction [None]
  - Erythema [None]

NARRATIVE: CASE EVENT DATE: 20210818
